FAERS Safety Report 9505935 (Version 1)
Quarter: 2013Q1

REPORT INFORMATION
  Report Type: Spontaneous
  Country: US (occurrence: None)
  Receive Date: 20130305
  Receipt Date: 20130305
  Transmission Date: 20140127
  Serious: No
  Sender: FDA-Public Use
  Company Number: 1000039642

PATIENT
  Age: 80 Year
  Sex: Male

DRUGS (5)
  1. DALIRESP [Suspect]
     Indication: CHRONIC OBSTRUCTIVE PULMONARY DISEASE
     Dates: start: 201209, end: 20121014
  2. DALIRESP [Suspect]
     Indication: CHRONIC OBSTRUCTIVE PULMONARY DISEASE
     Dates: start: 20121015, end: 20121017
  3. SPIRIVA (TIOTROPIUM BROMIDE) (TIOTROPIUM BROMIDE) [Concomitant]
  4. ADVAIR (SERTIDE) (SERTIDE) [Concomitant]
  5. PROAIR HFA (SALBUTAMOL SULFATE) (SALBUTAMOL SULFATE) [Concomitant]

REACTIONS (3)
  - Anxiety [None]
  - Depression [None]
  - Diarrhoea [None]
